FAERS Safety Report 6862434-5 (Version None)
Quarter: 2010Q3

REPORT INFORMATION
  Report Type: 
  Country: None (occurrence: None)
  Receive Date: 20100721
  Receipt Date: 20060111
  Transmission Date: 20110219
  Serious: Yes (Hospitalization)
  Sender: FDA-Public Use
  Company Number: FR-SANOFI-AVENTIS-A02200600120

PATIENT
  Age: 26 Year
  Sex: Female

DRUGS (2)
  1. ZOLPIDEM TARTRATE [Suspect]
     Indication: DRUG ABUSE
     Dosage: UNIT DOSE: 10 MG
     Route: 023
  2. METHADONE HCL [Concomitant]
     Route: 048

REACTIONS (2)
  - ABSCESS [None]
  - INTENTIONAL DRUG MISUSE [None]
